FAERS Safety Report 8405964-7 (Version None)
Quarter: 2012Q2

REPORT INFORMATION
  Report Type: 
  Country: None (occurrence: None)
  Receive Date: 20120604
  Receipt Date: 20120531
  Transmission Date: 20120825
  Serious: Yes (Other)
  Sender: FDA-Public Use
  Company Number: US-BAYER-2012-054554

PATIENT
  Age: 22 Year
  Sex: Female

DRUGS (1)
  1. MIRENA [Suspect]
     Indication: CONTRACEPTION
     Dosage: UNK
     Route: 015
     Dates: start: 20120401, end: 20120501

REACTIONS (5)
  - PREGNANCY WITH CONTRACEPTIVE DEVICE [None]
  - VOMITING IN PREGNANCY [None]
  - GAIT DISTURBANCE [None]
  - DEVICE DISLOCATION [None]
  - VULVOVAGINAL PAIN [None]
